FAERS Safety Report 5589300-X (Version None)
Quarter: 2008Q1

REPORT INFORMATION
  Report Type: 
  Country: None (occurrence: None)
  Receive Date: 20080109
  Receipt Date: 20080109
  Transmission Date: 20080703
  Serious: No
  Sender: FDA-Public Use
  Company Number: None

PATIENT
  Sex: Female
  Weight: 114.76 kg

DRUGS (1)
  1. COPAXONE [Suspect]
     Indication: MULTIPLE SCLEROSIS
     Dosage: 20MG QDAY SQ.
     Route: 058
     Dates: start: 20071015, end: 20071204

REACTIONS (5)
  - DRUG HYPERSENSITIVITY [None]
  - DYSARTHRIA [None]
  - HYPOAESTHESIA [None]
  - PALPITATIONS [None]
  - SWOLLEN TONGUE [None]
